FAERS Safety Report 24225669 (Version 1)
Quarter: 2024Q3

REPORT INFORMATION
  Report Type: Spontaneous
  Country: PL (occurrence: PL)
  Receive Date: 20240820
  Receipt Date: 20240820
  Transmission Date: 20241017
  Serious: Yes (Other)
  Sender: BLUEPRINT MEDICINES
  Company Number: PL-BLUEPRINT MEDICINES CORPORATION-2024BUS004468

PATIENT

DRUGS (1)
  1. GAVRETO [Suspect]
     Active Substance: PRALSETINIB
     Indication: Lung cancer metastatic
     Dosage: UNK
     Dates: start: 202311

REACTIONS (5)
  - Haemoglobin decreased [Unknown]
  - Dry mouth [Unknown]
  - Taste disorder [Unknown]
  - COVID-19 [Unknown]
  - Decreased appetite [Unknown]

NARRATIVE: CASE EVENT DATE: 20240101
